FAERS Safety Report 12675543 (Version 2)
Quarter: 2016Q3

REPORT INFORMATION
  Report Type: Spontaneous
  Country: CA (occurrence: CA)
  Receive Date: 20160823
  Receipt Date: 20160914
  Transmission Date: 20161109
  Serious: Yes (Hospitalization, Other)
  Sender: FDA-Public Use
  Company Number: CA-SUN PHARMACEUTICAL INDUSTRIES LTD-2016US-122486

PATIENT
  Age: 57 Year
  Sex: Male

DRUGS (12)
  1. PYRANZINAMIDE [Concomitant]
     Indication: TUBERCULOSIS
     Dosage: UNK
     Route: 065
  2. IMIPENEM [Concomitant]
     Active Substance: IMIPENEM
     Indication: MYCOBACTERIAL INFECTION
     Dosage: 500 MG, QID
     Route: 042
     Dates: start: 20140707
  3. ISONIAZID. [Concomitant]
     Active Substance: ISONIAZID
     Indication: TUBERCULOSIS
     Dosage: UNK
     Route: 065
  4. VANCOMYCIN [Concomitant]
     Active Substance: VANCOMYCIN
     Indication: PRODUCT USED FOR UNKNOWN INDICATION
     Dosage: 1.25 G, BID
     Route: 042
     Dates: end: 20140610
  5. RIFAMPIN. [Concomitant]
     Active Substance: RIFAMPIN
     Indication: TUBERCULOSIS
     Dosage: UNK
     Route: 065
  6. CLARITHROMYCIN. [Suspect]
     Active Substance: CLARITHROMYCIN
     Indication: MYCOBACTERIAL INFECTION
     Dosage: 500 MG, BID
     Route: 048
     Dates: start: 20140717
  7. WARFARIN [Interacting]
     Active Substance: WARFARIN
     Indication: PERIPHERAL VASCULAR DISORDER
     Dosage: UNK
     Route: 065
  8. PIPERACILLIN, TAZOBACTAM [Concomitant]
     Active Substance: PIPERACILLIN SODIUM\TAZOBACTAM SODIUM
     Indication: ABSCESS NECK
     Dosage: 4.5 G, TID
     Route: 042
     Dates: end: 20140609
  9. AMIKACIN [Concomitant]
     Active Substance: AMIKACIN
     Indication: MYCOBACTERIAL INFECTION
     Dosage: 900 MG, QD
     Route: 042
     Dates: start: 20140707
  10. PENICILLIN [Concomitant]
     Active Substance: PENICILLIN
     Indication: PRODUCT USED FOR UNKNOWN INDICATION
     Dosage: UNK
     Route: 048
  11. ETHAMBUTOL [Concomitant]
     Active Substance: ETHAMBUTOL HYDROCHLORIDE
     Indication: TUBERCULOSIS
     Dosage: UNK
     Route: 065
  12. MEROPENEM. [Concomitant]
     Active Substance: MEROPENEM
     Indication: ABSCESS NECK
     Dosage: 1 G, TID
     Route: 042

REACTIONS (3)
  - Gastrointestinal haemorrhage [Recovered/Resolved]
  - Drug interaction [Recovered/Resolved]
  - International normalised ratio increased [Recovered/Resolved]

NARRATIVE: CASE EVENT DATE: 20140727
